FAERS Safety Report 9708408 (Version 4)
Quarter: 2014Q1

REPORT INFORMATION
  Report Type: Spontaneous
  Country: US (occurrence: US)
  Receive Date: 20131125
  Receipt Date: 20140103
  Transmission Date: 20141002
  Serious: No
  Sender: FDA-Public Use
  Company Number: US-GILEAD-2013-0088630

PATIENT
  Sex: Female

DRUGS (4)
  1. LETAIRIS [Suspect]
     Indication: PULMONARY HYPERTENSION
     Dosage: 5 MG, QD
     Dates: start: 20131024
  2. LETAIRIS [Suspect]
     Indication: SCLERODERMA
  3. TYVASO [Suspect]
     Indication: PRODUCT USED FOR UNKNOWN INDICATION
  4. ADCIRCA [Concomitant]

REACTIONS (3)
  - Hypotension [Unknown]
  - Cough [Not Recovered/Not Resolved]
  - Throat irritation [Unknown]
